FAERS Safety Report 19175567 (Version 1)
Quarter: 2021Q2

REPORT INFORMATION
  Report Type: Spontaneous
  Country: PL (occurrence: PL)
  Receive Date: 20210423
  Receipt Date: 20210423
  Transmission Date: 20210717
  Serious: Yes (Hospitalization)
  Sender: FDA-Public Use
  Company Number: PL-PFIZER INC-2021414123

PATIENT
  Age: 70 Year
  Sex: Male
  Weight: 62 kg

DRUGS (1)
  1. DALACIN C [Suspect]
     Active Substance: CLINDAMYCIN
     Indication: LARYNGOPHARYNGITIS
     Dosage: 300 MG, 3X/DAY (FREQ: 8H)
     Route: 048
     Dates: start: 20180718, end: 20180723

REACTIONS (1)
  - Erythema [Recovering/Resolving]

NARRATIVE: CASE EVENT DATE: 20180728
